FAERS Safety Report 8449229-6 (Version None)
Quarter: 2012Q2

REPORT INFORMATION
  Report Type: 
  Country: None (occurrence: None)
  Receive Date: 20120619
  Receipt Date: 20120606
  Transmission Date: 20120825
  Serious: Yes (Other)
  Sender: FDA-Public Use
  Company Number: US-CELGENEUS-163-21880-12061261

PATIENT
  Sex: Male
  Weight: 74.683 kg

DRUGS (2)
  1. CRESTOR [Concomitant]
     Dosage: 10 MILLIGRAM
     Route: 065
  2. REVLIMID [Suspect]
     Indication: DIFFUSE LARGE B-CELL LYMPHOMA
     Dosage: 10 MILLIGRAM
     Route: 048
     Dates: start: 20090820, end: 20110425

REACTIONS (1)
  - ACUTE MYELOID LEUKAEMIA [None]
